FAERS Safety Report 16033915 (Version 3)
Quarter: 2019Q1

REPORT INFORMATION
  Report Type: Report from Study
  Country: FR (occurrence: FR)
  Receive Date: 20190305
  Receipt Date: 20190319
  Transmission Date: 20190418
  Serious: Yes (Hospitalization)
  Sender: FDA-Public Use
  Company Number: FR-ROCHE-2270894

PATIENT
  Age: 44 Year
  Sex: Female
  Weight: 61 kg

DRUGS (6)
  1. PERTUZUMAB. [Suspect]
     Active Substance: PERTUZUMAB
     Indication: HER-2 POSITIVE BREAST CANCER
     Dosage: MOST RECENT DOSE (420 MG): 28/JAN/2019?CYCLE 5
     Route: 042
     Dates: start: 20181126
  2. DOCETAXEL. [Suspect]
     Active Substance: DOCETAXEL
     Indication: HER-2 POSITIVE BREAST CANCER
     Dosage: MOST RECENT DOSE (131 MG): 28/JAN/2019?CYCLE 5
     Route: 042
     Dates: start: 20181126
  3. MEDROL [Concomitant]
     Active Substance: METHYLPREDNISOLONE
     Route: 048
     Dates: start: 20181105
  4. TRASTUZUMAB. [Suspect]
     Active Substance: TRASTUZUMAB
     Indication: HER-2 POSITIVE BREAST CANCER
     Dosage: MOST RECENT DOSE (372 MG): 28/JAN/2019?CYCLE 5
     Route: 042
     Dates: start: 20181126
  5. CARBOPLATINE [Suspect]
     Active Substance: CARBOPLATIN
     Indication: HER-2 POSITIVE BREAST CANCER
     Dosage: MOST RECENT DOSE (876 MG): 28/JAN/2019?CYCLE 5
     Route: 042
     Dates: start: 20181126
  6. EMEND [Concomitant]
     Active Substance: APREPITANT
     Route: 048
     Dates: start: 20181105

REACTIONS (1)
  - Phlebitis [Not Recovered/Not Resolved]

NARRATIVE: CASE EVENT DATE: 20190219
